FAERS Safety Report 5416691-2 (Version None)
Quarter: 2007Q3

REPORT INFORMATION
  Report Type: 
  Country: None (occurrence: None)
  Receive Date: 20070814
  Receipt Date: 20070717
  Transmission Date: 20080115
  Serious: Yes (Hospitalization)
  Sender: FDA-Public Use
  Company Number: 6036627

PATIENT
  Age: 40 Year
  Sex: Female

DRUGS (2)
  1. BISOMERCK PLUS [Suspect]
     Indication: SUICIDE ATTEMPT
     Dosage: 15 DOSAGE FORMS (1 DOSAGE FORMS, 15 IN 1 ONCE) ORAL
     Route: 048
  2. BUSCOPAN DRAGEES 10 (HYOSCINE BUTYLBROMIDE) [Suspect]
     Indication: SUICIDE ATTEMPT
     Dosage: 50 MG (10 MG, 5 IN 1 ONCE) ORAL
     Route: 048

REACTIONS (4)
  - BLOOD PRESSURE DECREASED [None]
  - BRADYCARDIA [None]
  - OVERDOSE [None]
  - SUICIDE ATTEMPT [None]
